FAERS Safety Report 7353091-2 (Version None)
Quarter: 2011Q1

REPORT INFORMATION
  Report Type: 
  Country: None (occurrence: None)
  Receive Date: 20110315
  Receipt Date: 20110307
  Transmission Date: 20110831
  Serious: Yes (Hospitalization)
  Sender: FDA-Public Use
  Company Number: US-ROCHE-764265

PATIENT
  Sex: Female
  Weight: 101.5 kg

DRUGS (5)
  1. TOCILIZUMAB [Suspect]
     Indication: RHEUMATOID ARTHRITIS
     Dosage: LAST DOSE PRIOR TO SAE: 24 FEB 2011
     Route: 042
     Dates: start: 20101007
  2. METHOTREXATE [Concomitant]
     Dates: start: 20100510
  3. IMITREX [Concomitant]
     Dosage: DOSING FREQUENCY: AS NECESSARY
     Dates: start: 20100907
  4. CELEBREX [Concomitant]
     Dates: start: 20110221
  5. FOLIC ACID [Concomitant]
     Dates: start: 20100510

REACTIONS (1)
  - CHEST PAIN [None]
